FAERS Safety Report 12521329 (Version 4)
Quarter: 2016Q3

REPORT INFORMATION
  Report Type: Spontaneous
  Country: JP (occurrence: JP)
  Receive Date: 20160701
  Receipt Date: 20160714
  Transmission Date: 20161109
  Serious: Yes (Congenital Anomaly)
  Sender: FDA-Public Use
  Company Number: JP-SA-2016SA121140

PATIENT
  Age: 0 Day

DRUGS (1)
  1. MYSLEE [Suspect]
     Active Substance: ZOLPIDEM TARTRATE
     Route: 064
     Dates: start: 20160608, end: 20160608

REACTIONS (1)
  - Somnolence neonatal [Unknown]

NARRATIVE: CASE EVENT DATE: 20160609
